FAERS Safety Report 12892821 (Version 1)
Quarter: 2016Q4

REPORT INFORMATION
  Report Type: Spontaneous
  Country: IT (occurrence: IT)
  Receive Date: 20161028
  Receipt Date: 20161028
  Transmission Date: 20170207
  Serious: Yes (Other)
  Sender: FDA-Public Use
  Company Number: IT-PFIZER INC-2016496914

PATIENT
  Age: 59 Year
  Sex: Male

DRUGS (3)
  1. VANCOMYCIN HCL [Suspect]
     Active Substance: VANCOMYCIN HYDROCHLORIDE
     Indication: LENS EXTRACTION
     Dosage: 1.0 MG/0.2 ML, SINGLE
     Route: 031
     Dates: start: 201210, end: 201210
  2. SODIUM HYALURONATE [Interacting]
     Active Substance: HYALURONATE SODIUM
     Indication: LENS EXTRACTION
     Dosage: UNK, SINGLE AS A VISCOELASTIC
     Route: 031
     Dates: start: 201210, end: 201210
  3. LIDOCAINE. [Concomitant]
     Active Substance: LIDOCAINE
     Indication: LENS EXTRACTION
     Dosage: UNK UNK, SINGLE
     Route: 031
     Dates: start: 201210, end: 201210

REACTIONS (2)
  - Retinal vascular occlusion [Not Recovered/Not Resolved]
  - Drug interaction [Not Recovered/Not Resolved]

NARRATIVE: CASE EVENT DATE: 201210
